FAERS Safety Report 8529272 (Version 4)
Quarter: 2014Q1

REPORT INFORMATION
  Report Type: Report from Study
  Country: ZW (occurrence: ZW)
  Receive Date: 20120112
  Receipt Date: 20140212
  Transmission Date: 20141002
  Serious: Yes (Hospitalization, Other)
  Sender: FDA-Public Use
  Company Number: ZW-GILEAD-2012-0048928

PATIENT
  Age: 39 Year
  Sex: Female
  Weight: 63.5 kg

DRUGS (8)
  1. TENOFOVIR DISOPROXIL FUMARATE [Suspect]
     Indication: HIV INFECTION
     Dosage: 300 MG, QD
     Route: 048
     Dates: start: 20110628
  2. NEVIRAPINE [Suspect]
     Indication: HIV INFECTION
     Dosage: 200 MG, BID
     Route: 048
     Dates: start: 20110628
  3. NEVIRAPINE [Suspect]
     Dosage: 200 MG, BID
     Route: 048
     Dates: start: 20090917, end: 20110510
  4. LAMIVUDINE [Suspect]
     Indication: HIV INFECTION
     Dosage: 300 MG, QD
     Route: 048
     Dates: start: 20110628
  5. LAMIVUDINE [Suspect]
     Dosage: 300 MG, QD
     Route: 048
     Dates: start: 20090917, end: 20110510
  6. STAVUDINE [Concomitant]
     Indication: ANTIRETROVIRAL THERAPY
     Dosage: 30 MG, BID
     Route: 048
     Dates: start: 20090917, end: 20110510
  7. COTRIMOXAZOLE [Concomitant]
     Indication: PROPHYLAXIS
     Dosage: UNK UNK, QHS
     Route: 048
  8. LO FEMENAL [Concomitant]
     Indication: CONTRACEPTION
     Dosage: UNK, QHS
     Route: 048

REACTIONS (1)
  - Diabetic ketoacidosis [Recovered/Resolved]
